FAERS Safety Report 5730246-1 (Version None)
Quarter: 2008Q2

REPORT INFORMATION
  Report Type: 
  Country: None (occurrence: None)
  Receive Date: 20080505
  Receipt Date: 20080505
  Transmission Date: 20081010
  Serious: Yes (Life-Threatening)
  Sender: FDA-Public Use
  Company Number: None

PATIENT
  Age: 59 Year
  Sex: Female
  Weight: 77.1115 kg

DRUGS (1)
  1. DIGITEK .25 BERTEK PHA [Suspect]
     Indication: CARDIAC FAILURE CONGESTIVE
     Dosage: 0.25 ONE DAILY
     Dates: start: 20080402, end: 20080430

REACTIONS (4)
  - DIZZINESS [None]
  - FALL [None]
  - NAUSEA [None]
  - PHARMACEUTICAL PRODUCT COMPLAINT [None]
